FAERS Safety Report 22019856 (Version 1)
Quarter: 2023Q1

REPORT INFORMATION
  Report Type: Spontaneous
  Country: DE (occurrence: DE)
  Receive Date: 20230222
  Receipt Date: 20230222
  Transmission Date: 20230418
  Serious: Yes (Other)
  Sender: FDA-Public Use
  Company Number: DE-002147023-NVSC2023DE035561

PATIENT
  Age: 40 Year
  Sex: Female

DRUGS (30)
  1. RISPERIDONE [Suspect]
     Active Substance: RISPERIDONE
     Indication: Dystonia
     Dosage: UNK
     Route: 065
  2. RISPERIDONE [Suspect]
     Active Substance: RISPERIDONE
     Indication: Tardive dyskinesia
  3. CLOZAPINE [Suspect]
     Active Substance: CLOZAPINE
     Indication: Dystonia
     Dosage: UNK
     Route: 065
  4. CLOZAPINE [Suspect]
     Active Substance: CLOZAPINE
     Indication: Tardive dyskinesia
  5. OLANZAPINE [Suspect]
     Active Substance: OLANZAPINE
     Indication: Dystonia
     Dosage: UNK
     Route: 065
  6. OLANZAPINE [Suspect]
     Active Substance: OLANZAPINE
     Indication: Tardive dyskinesia
  7. MIRTAZAPINE [Suspect]
     Active Substance: MIRTAZAPINE
     Indication: Dystonia
     Dosage: UNK
     Route: 065
  8. MIRTAZAPINE [Suspect]
     Active Substance: MIRTAZAPINE
     Indication: Tardive dyskinesia
  9. BACLOFEN [Suspect]
     Active Substance: BACLOFEN
     Indication: Dystonia
     Dosage: UNK
     Route: 065
  10. BACLOFEN [Suspect]
     Active Substance: BACLOFEN
     Indication: Tardive dyskinesia
  11. OXAZEPAM [Suspect]
     Active Substance: OXAZEPAM
     Indication: Dystonia
     Dosage: UNK
     Route: 065
  12. OXAZEPAM [Suspect]
     Active Substance: OXAZEPAM
     Indication: Tardive dyskinesia
  13. TRIMIPRAMINE [Suspect]
     Active Substance: TRIMIPRAMINE
     Indication: Dystonia
     Dosage: UNK
     Route: 065
  14. TRIMIPRAMINE [Suspect]
     Active Substance: TRIMIPRAMINE
     Indication: Tardive dyskinesia
  15. TIZANIDINE [Suspect]
     Active Substance: TIZANIDINE
     Indication: Dystonia
     Dosage: UNK
     Route: 065
  16. TIZANIDINE [Suspect]
     Active Substance: TIZANIDINE
     Indication: Tardive dyskinesia
  17. FLUOXETINE [Suspect]
     Active Substance: FLUOXETINE HYDROCHLORIDE
     Indication: Dystonia
     Dosage: UNK
     Route: 065
  18. FLUOXETINE [Suspect]
     Active Substance: FLUOXETINE HYDROCHLORIDE
     Indication: Tardive dyskinesia
  19. BUSPIRONE [Suspect]
     Active Substance: BUSPIRONE HYDROCHLORIDE
     Indication: Dystonia
     Dosage: UNK
     Route: 065
  20. BUSPIRONE [Suspect]
     Active Substance: BUSPIRONE HYDROCHLORIDE
     Indication: Tardive dyskinesia
  21. TETRABENAZINE [Suspect]
     Active Substance: TETRABENAZINE
     Indication: Dystonia
     Dosage: UNK
     Route: 065
  22. TETRABENAZINE [Suspect]
     Active Substance: TETRABENAZINE
     Indication: Tardive dyskinesia
  23. CLONAZEPAM [Suspect]
     Active Substance: CLONAZEPAM
     Indication: Dystonia
     Dosage: UNK
     Route: 065
  24. CLONAZEPAM [Suspect]
     Active Substance: CLONAZEPAM
     Indication: Tardive dyskinesia
  25. CLOBAZAM [Suspect]
     Active Substance: CLOBAZAM
     Indication: Dystonia
     Dosage: UNK
     Route: 065
  26. CLOBAZAM [Suspect]
     Active Substance: CLOBAZAM
     Indication: Tardive dyskinesia
  27. PIPAMPERONE [Suspect]
     Active Substance: PIPAMPERONE
     Indication: Dystonia
     Dosage: UNK
     Route: 065
  28. PIPAMPERONE [Suspect]
     Active Substance: PIPAMPERONE
     Indication: Tardive dyskinesia
  29. DANTROLENE [Suspect]
     Active Substance: DANTROLENE
     Indication: Dystonia
     Dosage: UNK
     Route: 065
  30. DANTROLENE [Suspect]
     Active Substance: DANTROLENE
     Indication: Tardive dyskinesia

REACTIONS (3)
  - Tardive dyskinesia [Unknown]
  - Condition aggravated [Unknown]
  - Drug ineffective for unapproved indication [Unknown]
